FAERS Safety Report 23322351 (Version 1)
Quarter: 2023Q4

REPORT INFORMATION
  Report Type: Spontaneous
  Country: US (occurrence: US)
  Receive Date: 20231220
  Receipt Date: 20231220
  Transmission Date: 20240109
  Serious: Yes (Other)
  Sender: FDA-Public Use
  Company Number: US-Merck Healthcare KGaA-2023495443

PATIENT
  Age: 56 Year
  Sex: Female

DRUGS (4)
  1. AVELUMAB [Suspect]
     Active Substance: AVELUMAB
     Indication: Thyroid cancer
  2. AVELUMAB [Suspect]
     Active Substance: AVELUMAB
     Indication: Adenoid cystic carcinoma
  3. INLYTA [Suspect]
     Active Substance: AXITINIB
     Indication: Thyroid cancer
     Route: 048
     Dates: start: 20231208, end: 20231213
  4. INLYTA [Suspect]
     Active Substance: AXITINIB
     Indication: Adenoid cystic carcinoma
     Route: 048
     Dates: start: 20231214

REACTIONS (3)
  - Vomiting [Unknown]
  - Hypertension [Unknown]
  - Off label use [Unknown]

NARRATIVE: CASE EVENT DATE: 20231201
